FAERS Safety Report 14615159 (Version 1)
Quarter: 2018Q1

REPORT INFORMATION
  Report Type: Spontaneous
  Country: ZA (occurrence: ZA)
  Receive Date: 20180308
  Receipt Date: 20180308
  Transmission Date: 20180509
  Serious: Yes (Other)
  Sender: FDA-Public Use
  Company Number: ZA-PFIZER INC-2018091301

PATIENT
  Age: 84 Year
  Sex: Female

DRUGS (7)
  1. CARDICOR [Suspect]
     Active Substance: BISOPROLOL
     Dosage: 2.5 MG, UNK
  2. ASPAVOR [Suspect]
     Active Substance: ATORVASTATIN
     Dosage: 40 MG, UNK
  3. TAREG [Suspect]
     Active Substance: VALSARTAN
     Dosage: 80 MG, UNK
  4. ELTROXIN [Suspect]
     Active Substance: LEVOTHYROXINE
     Dosage: 150 UG, UNK
  5. ECOTRIN [Suspect]
     Active Substance: ASPIRIN
     Dosage: 81 MG, UNK
  6. MONICOR SR [Suspect]
     Active Substance: ISOSORBIDE MONONITRATE
     Dosage: 60 MG, UNK
  7. ISOSORBIDE SANDOZ [Suspect]
     Active Substance: ISOSORBIDE MONONITRATE
     Dosage: 5 MG, UNK

REACTIONS (2)
  - Hypoacusis [Unknown]
  - Blindness [Unknown]
